FAERS Safety Report 12741669 (Version 1)
Quarter: 2016Q3

REPORT INFORMATION
  Report Type: Spontaneous
  Country: US (occurrence: US)
  Receive Date: 20160913
  Receipt Date: 20160913
  Transmission Date: 20161109
  Serious: Yes (Other)
  Sender: FDA-Public Use
  Company Number: None

PATIENT
  Age: 60 Year
  Sex: Female
  Weight: 58.5 kg

DRUGS (8)
  1. L-LYSINE [Concomitant]
     Active Substance: LYSINE
  2. XGEVA [Suspect]
     Active Substance: DENOSUMAB
     Indication: CHEMOTHERAPY
     Dosage: OTHER STRENGTH:;OTHER DOSE:;OTHER FREQUENCY:;OTHER ROUTE:INJECTED INTO STOMACH
  3. WOMEN^S MULTI-VITAMIN PUBLIX GREENWISE FOOD BASED [Concomitant]
  4. AMOXICILLIN. [Concomitant]
     Active Substance: AMOXICILLIN
  5. XGEVA [Suspect]
     Active Substance: DENOSUMAB
     Indication: BONE CANCER
     Dosage: OTHER STRENGTH:;OTHER DOSE:;OTHER FREQUENCY:;OTHER ROUTE:INJECTED INTO STOMACH
  6. IBRANCE [Concomitant]
     Active Substance: PALBOCICLIB
  7. HERCEPTIN CHEMO TREATMENT [Concomitant]
  8. LETROZOLE. [Concomitant]
     Active Substance: LETROZOLE

REACTIONS (1)
  - Osteomyelitis [None]

NARRATIVE: CASE EVENT DATE: 20160101
